FAERS Safety Report 8539913-8 (Version None)
Quarter: 2012Q3

REPORT INFORMATION
  Report Type: 
  Country: None (occurrence: None)
  Receive Date: 20120726
  Receipt Date: 20120711
  Transmission Date: 20120928
  Serious: Yes (Other)
  Sender: FDA-Public Use
  Company Number: CA-WATSON-2012-12357

PATIENT

DRUGS (1)
  1. LEVONORGESTREL [Suspect]
     Indication: ORAL CONTRACEPTION
     Dosage: 2 TABLETS, STAT
     Route: 048
     Dates: start: 20120627, end: 20120627

REACTIONS (4)
  - HEADACHE [None]
  - DIZZINESS [None]
  - HALLUCINATION, VISUAL [None]
  - FATIGUE [None]
